FAERS Safety Report 14654274 (Version 2)
Quarter: 2018Q2

REPORT INFORMATION
  Report Type: Spontaneous
  Country: IT (occurrence: IT)
  Receive Date: 20180319
  Receipt Date: 20180518
  Transmission Date: 20180711
  Serious: Yes (Hospitalization, Other)
  Sender: FDA-Public Use
  Company Number: PHHY2017IT186093

PATIENT
  Age: 2 Year
  Sex: Male

DRUGS (21)
  1. FENTANYL. [Suspect]
     Active Substance: FENTANYL
     Dosage: 0.65 UG/KG PER HOUR (DAY 4)
     Route: 042
  2. FENTANYL. [Suspect]
     Active Substance: FENTANYL
     Dosage: 0.95 ?G/KG FOR 24 HOURS
     Route: 042
  3. FENTANYL. [Suspect]
     Active Substance: FENTANYL
     Dosage: 0.65 ?G/KG,FOR 16 HOURS
     Route: 042
  4. MIDAZOLAM [Suspect]
     Active Substance: MIDAZOLAM HYDROCHLORIDE
     Indication: SEDATION
     Dosage: 0.03 MG/KG, QH (10 HR) (DAY 1)
     Route: 042
  5. PROPOFOL. [Suspect]
     Active Substance: PROPOFOL
     Dosage: 0.93 MG/KG, QH (24 HR) (DAY 2)
     Route: 042
  6. HYDROXYZINE [Suspect]
     Active Substance: HYDROXYZINE HYDROCHLORIDE
     Dosage: 1 MG/KG, UNK (DAY 4)
     Route: 050
  7. FENTANYL. [Suspect]
     Active Substance: FENTANYL
     Dosage: 0.65 MICROG/KG/H FOR 16 HOURS ON DAY 4
     Route: 050
  8. HYDROXYZINE [Suspect]
     Active Substance: HYDROXYZINE HYDROCHLORIDE
     Dosage: 2 MG/KG, UNK
     Route: 050
  9. MIDAZOLAM [Suspect]
     Active Substance: MIDAZOLAM HYDROCHLORIDE
     Dosage: 0.16 MG/KG, QH (24 HR) (DAY 2)
     Route: 042
  10. FENTANYL. [Suspect]
     Active Substance: FENTANYL
     Indication: AGITATION
     Dosage: 0.95 UG/KG, QH (24 HR) (DAY 3)
     Route: 042
  11. FENTANYL. [Suspect]
     Active Substance: FENTANYL
     Dosage: 0.95 MICROG/KG/H FOR 24 HOURS ON DAY 3
     Route: 050
  12. MIDAZOLAM [Suspect]
     Active Substance: MIDAZOLAM HYDROCHLORIDE
     Dosage: 0.17 MG/KG, QH (16 HR) (DAY 3)
     Route: 042
  13. MIDAZOLAM [Suspect]
     Active Substance: MIDAZOLAM HYDROCHLORIDE
     Dosage: 0.16 MG/KG, QH (16 HR) (DAY 3)
     Route: 042
  14. PROPOFOL. [Suspect]
     Active Substance: PROPOFOL
     Dosage: 4 MG/KG, QH (24 HR) (DAY 3)
     Route: 042
  15. PROPOFOL. [Suspect]
     Active Substance: PROPOFOL
     Dosage: 5.38 MG/KG, QH (14 HR) (DAY 4)
     Route: 042
  16. HYDROXYZINE [Suspect]
     Active Substance: HYDROXYZINE HYDROCHLORIDE
     Indication: DRUG WITHDRAWAL MAINTENANCE THERAPY
     Dosage: 1 MG/KG ENTERAL ROUTE (DAY 4)
     Route: 048
  17. PROPOFOL. [Suspect]
     Active Substance: PROPOFOL
     Indication: SEDATION
     Dosage: 8 MG/KG, QH (4 HR) (DAY 1)
     Route: 042
  18. FENTANYL. [Suspect]
     Active Substance: FENTANYL
     Indication: MOVEMENT DISORDER
     Dosage: 0.65 UG/KG, QH (16 HR) (DAY 4)
     Route: 042
  19. FENTANYL. [Suspect]
     Active Substance: FENTANYL
     Dosage: 0.95 UG/KG PER HOUR (DAY3)
     Route: 042
  20. HYDROXYZINE [Suspect]
     Active Substance: HYDROXYZINE HYDROCHLORIDE
     Dosage: 2 MG/KG ENTERAL ROUTE (DAY 2 AND 3)
     Route: 048
  21. FENTANYL. [Suspect]
     Active Substance: FENTANYL
     Dosage: 065 ?G/KG, FOR 16 HOURS
     Route: 042

REACTIONS (8)
  - Postural tremor [Recovered/Resolved]
  - Automatism [Recovered/Resolved]
  - Mutism [Recovered/Resolved]
  - Drug withdrawal syndrome [Recovered/Resolved]
  - Dyskinesia [Recovered/Resolved]
  - Cogwheel rigidity [Recovered/Resolved]
  - Akinesia [Recovered/Resolved]
  - Oculogyric crisis [Recovered/Resolved]
